FAERS Safety Report 25597195 (Version 1)
Quarter: 2025Q3

REPORT INFORMATION
  Report Type: Spontaneous
  Country: US (occurrence: US)
  Receive Date: 20250723
  Receipt Date: 20250723
  Transmission Date: 20251021
  Serious: No
  Sender: ROCHE
  Company Number: US-ROCHE-10000338184

PATIENT
  Sex: Female

DRUGS (3)
  1. XOLAIR PFS [Suspect]
     Active Substance: OMALIZUMAB
     Indication: Rhinitis allergic
     Dosage: SRENGTH: 150MG/ML
     Route: 058
     Dates: start: 202504
  2. XOLAIR PFS [Suspect]
     Active Substance: OMALIZUMAB
  3. ZYRTEC [Concomitant]
     Active Substance: CETIRIZINE HYDROCHLORIDE

REACTIONS (2)
  - Urticaria [Unknown]
  - Off label use [Unknown]
